FAERS Safety Report 9349846 (Version 3)
Quarter: 2014Q4

REPORT INFORMATION
  Report Type: Report from Study
  Country: GB (occurrence: GB)
  Receive Date: 20130614
  Receipt Date: 20141016
  Transmission Date: 20150529
  Serious: Yes (Death, Hospitalization)
  Sender: FDA-Public Use
  Company Number: GB-ROCHE-1236160

PATIENT
  Age: 55 Year
  Sex: Male
  Weight: 59.8 kg

DRUGS (11)
  1. LIDOCAINE. [Concomitant]
     Active Substance: LIDOCAINE
  2. MORPHINE SULFATE. [Concomitant]
     Active Substance: MORPHINE SULFATE
     Route: 065
  3. ABSTRAL [Concomitant]
     Active Substance: FENTANYL CITRATE
     Route: 065
  4. BUSCOPAN [Concomitant]
     Active Substance: BUTYLSCOPOLAMINE BROMIDE
     Route: 065
  5. LOPERMIDE [Concomitant]
     Route: 065
  6. ORAMORPH SR SUSTAINED RELEASE [Concomitant]
     Active Substance: MORPHINE SULFATE
     Dosage: 10-20 MG
     Route: 065
  7. PREGABALIN. [Concomitant]
     Active Substance: PREGABALIN
     Route: 065
  8. BEVACIZUMAB [Suspect]
     Active Substance: BEVACIZUMAB
     Indication: COLORECTAL CANCER
     Dosage: 17/MAY/2013 LAST DOSE PRIOR TO SEIOUS ADVERSE EVENT.
     Route: 042
     Dates: start: 20130326, end: 20130612
  9. FENTANYL. [Concomitant]
     Active Substance: FENTANYL
     Dosage: DOSE: 37 MCG/HOUR
     Route: 065
     Dates: start: 20130505
  10. MIRTAZAPINE. [Concomitant]
     Active Substance: MIRTAZAPINE
     Route: 065
  11. OMEPRAZOLE. [Concomitant]
     Active Substance: OMEPRAZOLE
     Route: 065

REACTIONS (4)
  - Diarrhoea [Not Recovered/Not Resolved]
  - Lower gastrointestinal haemorrhage [Fatal]
  - Malaise [Unknown]
  - Hypotension [Unknown]

NARRATIVE: CASE EVENT DATE: 20130605
